FAERS Safety Report 6523817-6 (Version None)
Quarter: 2009Q4

REPORT INFORMATION
  Report Type: 
  Country: None (occurrence: None)
  Receive Date: 20091231
  Receipt Date: 20091221
  Transmission Date: 20100525
  Serious: Yes (Other)
  Sender: FDA-Public Use
  Company Number: US-JNJFOC-20091004956

PATIENT
  Sex: Male
  Weight: 11.79 kg

DRUGS (5)
  1. CHILDREN'S TYLENOL PLUS FLU BUBBLEGUM [Suspect]
     Indication: PYREXIA
     Route: 048
  2. CHILDREN'S TYLENOL PLUS FLU BUBBLEGUM [Suspect]
     Indication: NASAL CONGESTION
     Route: 048
  3. CHILDREN'S TYLENOL PLUS FLU BUBBLEGUM [Suspect]
     Indication: COUGH
     Route: 048
  4. CHILDREN'S TYLENOL PLUS FLU BUBBLEGUM [Suspect]
     Indication: NASOPHARYNGITIS
     Route: 048
  5. CHILDREN'S VITAMIN [Concomitant]
     Indication: VITAMIN SUPPLEMENTATION
     Dosage: ^ONE SOME DAYS^

REACTIONS (4)
  - MALAISE [None]
  - PHARYNGITIS STREPTOCOCCAL [None]
  - TRANSMISSION OF AN INFECTIOUS AGENT VIA A MEDICINAL PRODUCT [None]
  - WRONG DRUG ADMINISTERED [None]
